FAERS Safety Report 15987161 (Version 1)
Quarter: 2019Q1

REPORT INFORMATION
  Report Type: Report from Study
  Country: CO (occurrence: CO)
  Receive Date: 20190220
  Receipt Date: 20190220
  Transmission Date: 20190418
  Serious: Yes (Death, Hospitalization)
  Sender: FDA-Public Use
  Company Number: CO-INCYTE CORPORATION-2018IN013474

PATIENT

DRUGS (2)
  1. JAKAVI [Suspect]
     Active Substance: RUXOLITINIB
     Dosage: 5 MG, Q12H (EVERY 12 HOURS)
     Route: 048
  2. JAKAVI [Suspect]
     Active Substance: RUXOLITINIB
     Indication: MYELOFIBROSIS
     Dosage: 15 MG, Q12H (EVERY 12 HOURS)
     Route: 048
     Dates: start: 20180922

REACTIONS (4)
  - Haemoglobin decreased [Unknown]
  - Drug ineffective [Unknown]
  - Platelet count decreased [Unknown]
  - Cardio-respiratory arrest [Fatal]
